FAERS Safety Report 20462603 (Version 1)
Quarter: 2022Q1

REPORT INFORMATION
  Report Type: Spontaneous
  Country: US (occurrence: US)
  Receive Date: 20220211
  Receipt Date: 20220211
  Transmission Date: 20220423
  Serious: No
  Sender: FDA-Public Use
  Company Number: US-SANOFI-00958946

PATIENT
  Sex: Female

DRUGS (5)
  1. XYZAL ALLERGY 24HR [Suspect]
     Active Substance: LEVOCETIRIZINE DIHYDROCHLORIDE
     Indication: Eczema
     Dosage: UNK UNK, PRN
  2. XYZAL ALLERGY 24HR [Suspect]
     Active Substance: LEVOCETIRIZINE DIHYDROCHLORIDE
     Indication: Pruritus
  3. ALLEGRA ALLERGY [Suspect]
     Active Substance: FEXOFENADINE HYDROCHLORIDE
     Indication: Eczema
     Dosage: 2 DF (1 IN EVENING AND 1 IN NIGHT)
  4. IVERMECTIN [Concomitant]
     Active Substance: IVERMECTIN
  5. DUPIXENT [Concomitant]
     Active Substance: DUPILUMAB

REACTIONS (3)
  - Sedation complication [Unknown]
  - Off label use [Unknown]
  - Intentional product misuse [Unknown]
